FAERS Safety Report 7534522-1 (Version None)
Quarter: 2011Q2

REPORT INFORMATION
  Report Type: 
  Country: None (occurrence: None)
  Receive Date: 20110609
  Receipt Date: 20090508
  Transmission Date: 20111010
  Serious: Yes (Death, Hospitalization)
  Sender: FDA-Public Use
  Company Number: PHHY2009JP10480

PATIENT
  Sex: Male

DRUGS (5)
  1. ACTOS [Concomitant]
     Dosage: 30 MG, UNK
     Route: 048
  2. AMARYL [Concomitant]
     Dosage: 3 MG, UNK
     Route: 048
  3. DIOVAN [Suspect]
     Dosage: 80 MG, QD
     Route: 048
     Dates: start: 20081125
  4. EVIPROSTAT [Concomitant]
     Dosage: 6 DF, UNK
     Route: 048
     Dates: start: 20080601
  5. URIEF [Concomitant]
     Dosage: 8 MG, UNK
     Route: 048
     Dates: start: 20080601

REACTIONS (3)
  - CONDITION AGGRAVATED [None]
  - DEMENTIA [None]
  - PNEUMONIA [None]
